FAERS Safety Report 22373500 (Version 1)
Quarter: 2023Q2

REPORT INFORMATION
  Report Type: Spontaneous
  Country: PL (occurrence: PL)
  Receive Date: 20230526
  Receipt Date: 20230526
  Transmission Date: 20230722
  Serious: Yes (Other)
  Sender: FDA-Public Use
  Company Number: PL-CHEPLA-2023005795

PATIENT
  Age: 75 Year
  Sex: Male

DRUGS (6)
  1. CAPECITABINE [Suspect]
     Active Substance: CAPECITABINE
     Indication: Squamous cell carcinoma of skin
     Dosage: 500 MILLIGRAM, TID, METRONOMIC CHEMOTHERAPY
     Route: 048
     Dates: start: 2019
  2. CAPECITABINE [Suspect]
     Active Substance: CAPECITABINE
     Dosage: 500 MILLIGRAM, TID
     Route: 048
     Dates: start: 201910
  3. PACLITAXEL [Suspect]
     Active Substance: PACLITAXEL
     Indication: Squamous cell carcinoma of skin
     Dosage: UNK, ADMINISTERED ON DAY 1, 8 AND 15, REPEATED
     Route: 042
     Dates: start: 201910
  4. METHOTREXATE [Suspect]
     Active Substance: METHOTREXATE
     Indication: Squamous cell carcinoma of skin
     Dosage: 5 MILLIGRAM, PRN, ADMINISTERED TWICE A WEEK
     Route: 048
     Dates: start: 2019
  5. CISPLATIN [Suspect]
     Active Substance: CISPLATIN
     Indication: Squamous cell carcinoma of skin
     Dosage: UNK, ADMINISTERED ON DAY 1, 8 AND 15, REPEATED
     Route: 042
     Dates: start: 201910
  6. CYCLOPHOSPHAMIDE [Suspect]
     Active Substance: CYCLOPHOSPHAMIDE
     Indication: Squamous cell carcinoma of skin
     Dosage: 50 MILLIGRAM, QD, METRONOMIC CHEMOTHERAPY
     Route: 048
     Dates: start: 2019

REACTIONS (5)
  - Ototoxicity [Unknown]
  - Neutropenia [Unknown]
  - Wound haemorrhage [Recovered/Resolved]
  - Product use in unapproved indication [Unknown]
  - Off label use [Unknown]

NARRATIVE: CASE EVENT DATE: 20190101
